FAERS Safety Report 12729502 (Version 1)
Quarter: 2016Q3

REPORT INFORMATION
  Report Type: Report from Study
  Country: BR (occurrence: BR)
  Receive Date: 20160909
  Receipt Date: 20160909
  Transmission Date: 20161109
  Serious: Yes (Other)
  Sender: FDA-Public Use
  Company Number: BR-ABBVIE-16P-020-1723252-00

PATIENT
  Age: 53 Year
  Sex: Female
  Weight: 51 kg

DRUGS (1)
  1. SYNTHROID [Suspect]
     Active Substance: LEVOTHYROXINE SODIUM
     Indication: THYROID MASS
     Dosage: 25 MCG IN THE MORNING
     Route: 048
     Dates: start: 2013

REACTIONS (1)
  - Aneurysm [Unknown]

NARRATIVE: CASE EVENT DATE: 201605
